FAERS Safety Report 26217577 (Version 1)
Quarter: 2025Q4

REPORT INFORMATION
  Report Type: Spontaneous
  Country: EU (occurrence: EU)
  Receive Date: 20251231
  Receipt Date: 20251231
  Transmission Date: 20260117
  Serious: Yes (Hospitalization)
  Sender: ROCHE
  Company Number: None

PATIENT
  Age: 5 Year
  Sex: Female
  Weight: 17.4 kg

DRUGS (2)
  1. TAMIFLU [Suspect]
     Active Substance: OSELTAMIVIR PHOSPHATE
     Indication: Influenza
     Route: 048
     Dates: start: 20251204, end: 20251206
  2. NUROFEN b?rniem SUSPENSIJA IEK???GAI LIETO?ANAI [Concomitant]
     Indication: Influenza
     Route: 048
     Dates: start: 20251204, end: 20251204

REACTIONS (8)
  - Vomiting [Recovering/Resolving]
  - Syncope [Recovering/Resolving]
  - Febrile convulsion [Recovering/Resolving]
  - Face oedema [Recovering/Resolving]
  - Localised oedema [Recovering/Resolving]
  - Periorbital oedema [Recovering/Resolving]
  - Pyrexia [Recovering/Resolving]
  - Blood pressure measurement [Recovering/Resolving]

NARRATIVE: CASE EVENT DATE: 20251204
